FAERS Safety Report 10582893 (Version 1)
Quarter: 2014Q4

REPORT INFORMATION
  Report Type: Report from Study
  Country: US (occurrence: US)
  Receive Date: 20141114
  Receipt Date: 20141114
  Transmission Date: 20150529
  Serious: No
  Sender: FDA-Public Use
  Company Number: US-AMGEN INC.-USASL2014087153

PATIENT
  Age: 10 Year
  Sex: Male

DRUGS (1)
  1. ENBREL [Suspect]
     Active Substance: ETANERCEPT
     Indication: RHEUMATOID ARTHRITIS
     Dosage: 35 MG, QWK
     Route: 058
     Dates: start: 201408

REACTIONS (3)
  - Sluggishness [Unknown]
  - Malaise [Unknown]
  - Fatigue [Unknown]

NARRATIVE: CASE EVENT DATE: 2014
